FAERS Safety Report 7043668-6 (Version None)
Quarter: 2010Q4

REPORT INFORMATION
  Report Type: 
  Country: None (occurrence: None)
  Receive Date: 20101013
  Receipt Date: 20100723
  Transmission Date: 20110411
  Serious: No
  Sender: FDA-Public Use
  Company Number: US-ASTRAZENECA-2010SE34720

PATIENT
  Sex: Female
  Weight: 99.8 kg

DRUGS (6)
  1. SYMBICORT [Suspect]
     Indication: ASTHMA
     Dosage: 2 PUFFS BID
     Route: 055
     Dates: start: 20100601
  2. OMEPRAZOLE [Concomitant]
  3. GLYBERIDE [Concomitant]
  4. METFORMIN [Concomitant]
  5. LOVASTATIN [Concomitant]
  6. SERTRALINE HYDROCHLORIDE [Concomitant]

REACTIONS (2)
  - DYSPNOEA [None]
  - FATIGUE [None]
